FAERS Safety Report 13726043 (Version 1)
Quarter: 2017Q3

REPORT INFORMATION
  Report Type: Spontaneous
  Country: CN (occurrence: CN)
  Receive Date: 20170706
  Receipt Date: 20170706
  Transmission Date: 20171127
  Serious: Yes (Other)
  Sender: FDA-Public Use
  Company Number: CN-BAYER-2017-125479

PATIENT
  Sex: Female

DRUGS (1)
  1. YASMIN [Suspect]
     Active Substance: DROSPIRENONE\ETHINYL ESTRADIOL
     Dosage: UNK
     Route: 048
     Dates: start: 201701

REACTIONS (4)
  - Blood pressure decreased [Not Recovered/Not Resolved]
  - Blood bilirubin increased [None]
  - Alanine aminotransferase increased [None]
  - Sinus arrhythmia [None]

NARRATIVE: CASE EVENT DATE: 201706
